FAERS Safety Report 11922086 (Version 2)
Quarter: 2016Q1

REPORT INFORMATION
  Report Type: Spontaneous
  Country: US (occurrence: US)
  Receive Date: 20160115
  Receipt Date: 20160303
  Transmission Date: 20160526
  Serious: No
  Sender: FDA-Public Use
  Company Number: US-PFIZER INC-2016009358

PATIENT
  Age: 80 Year
  Sex: Female
  Weight: 73.3 kg

DRUGS (4)
  1. LAMOTRIGINE. [Interacting]
     Active Substance: LAMOTRIGINE
     Dosage: UNK UNK, AS NEEDED
     Dates: start: 2015
  2. BELSOMRA [Interacting]
     Active Substance: SUVOREXANT
     Indication: SLEEP DISORDER
     Dosage: 20MG, TABLETS, 1X/DAY, BEFORE BED
     Route: 048
     Dates: start: 20160106
  3. LAMOTRIGINE. [Interacting]
     Active Substance: LAMOTRIGINE
     Dosage: 100 MG, EVERY NIGHT
     Dates: start: 2015
  4. ADVIL SINUS CONGESTION AND PAIN [Suspect]
     Active Substance: IBUPROFEN\PHENYLEPHRINE HYDROCHLORIDE
     Indication: NASAL CONGESTION
     Dosage: 1 PILL, BY MOUTH, IN MORNING
     Route: 048
     Dates: start: 20160108

REACTIONS (7)
  - Product use issue [Recovered/Resolved]
  - Drug interaction [Recovering/Resolving]
  - Drug prescribing error [Recovered/Resolved]
  - Dry mouth [Recovering/Resolving]
  - Condition aggravated [Recovering/Resolving]
  - Malaise [Recovering/Resolving]
  - Somnolence [Recovering/Resolving]

NARRATIVE: CASE EVENT DATE: 2015
